FAERS Safety Report 19275492 (Version 1)
Quarter: 2021Q2

REPORT INFORMATION
  Report Type: Spontaneous
  Country: US (occurrence: US)
  Receive Date: 20210519
  Receipt Date: 20210519
  Transmission Date: 20210717
  Serious: No
  Sender: FDA-Public Use
  Company Number: US-GW PHARMA-202105USGW02341

PATIENT

DRUGS (5)
  1. EPIDIOLEX [Suspect]
     Active Substance: CANNABIDIOL
     Dosage: 10.08 MG/KG/DAY, 320 MILLIGRAM, BID (DOSE INCREASED)
     Route: 048
     Dates: start: 20210406, end: 2021
  2. EPIDIOLEX [Suspect]
     Active Substance: CANNABIDIOL
     Dosage: 5.35 MG/KG/DAY, 170 MILLIGRAM, BID
     Route: 048
     Dates: start: 2021, end: 20210505
  3. EPIDIOLEX [Suspect]
     Active Substance: CANNABIDIOL
     Indication: TUBEROUS SCLEROSIS COMPLEX
     Dosage: 5.35 MG/KG/DAY, 170 MILLIGRAM, BID
     Route: 048
     Dates: start: 20210118, end: 20210405
  4. CLONAZEPAM. [Concomitant]
     Active Substance: CLONAZEPAM
     Indication: SEIZURE
     Dosage: AS NEEDED
     Route: 065
  5. VIMPAT [Concomitant]
     Active Substance: LACOSAMIDE
     Indication: SEIZURE
     Dosage: UNK
     Route: 065

REACTIONS (2)
  - Rash macular [Recovering/Resolving]
  - Benign neoplasm [Unknown]

NARRATIVE: CASE EVENT DATE: 2021
